FAERS Safety Report 18868043 (Version 1)
Quarter: 2021Q1

REPORT INFORMATION
  Report Type: Report from Study
  Country: US (occurrence: US)
  Receive Date: 20210209
  Receipt Date: 20210209
  Transmission Date: 20210420
  Serious: No
  Sender: FDA-Public Use
  Company Number: NVSC2021US026347

PATIENT
  Sex: Female

DRUGS (1)
  1. VOTRIENT [Suspect]
     Active Substance: PAZOPANIB HYDROCHLORIDE
     Indication: CARCINOID TUMOUR
     Dosage: 800 MG, QD
     Route: 048
     Dates: start: 20200812

REACTIONS (2)
  - Nausea [Unknown]
  - Pain in extremity [Unknown]
